FAERS Safety Report 18768161 (Version 2)
Quarter: 2021Q2

REPORT INFORMATION
  Report Type: Spontaneous
  Country: MY (occurrence: MY)
  Receive Date: 20210121
  Receipt Date: 20210421
  Transmission Date: 20210717
  Serious: Yes (Death, Other)
  Sender: FDA-Public Use
  Company Number: MY-CIPLA LTD.-2021MY00375

PATIENT

DRUGS (1)
  1. EFAVIR [Suspect]
     Active Substance: EFAVIRENZ
     Indication: ANTIRETROVIRAL THERAPY
     Dosage: 600 MILLIGRAM, QD (24 HOURS)
     Route: 048

REACTIONS (6)
  - Lactic acidosis [Fatal]
  - Alanine aminotransferase increased [Fatal]
  - Coagulation factor increased [Fatal]
  - Blood bilirubin increased [Fatal]
  - Rash [Recovered/Resolved]
  - Aspartate aminotransferase increased [Fatal]
